FAERS Safety Report 9652762 (Version 3)
Quarter: 2014Q1

REPORT INFORMATION
  Report Type: Spontaneous
  Country: US (occurrence: US)
  Receive Date: 20131029
  Receipt Date: 20140108
  Transmission Date: 20141002
  Serious: Yes (Hospitalization, Other)
  Sender: FDA-Public Use
  Company Number: US-BAYER-2013-130740

PATIENT
  Age: 48 Year
  Sex: Female
  Weight: 72.56 kg

DRUGS (9)
  1. YASMIN [Suspect]
     Dosage: UNK
     Dates: start: 20080731, end: 20080818
  2. YAZ [Suspect]
     Dosage: UNK
     Dates: start: 2008
  3. PRILOSEC [Concomitant]
     Indication: GASTROOESOPHAGEAL REFLUX DISEASE
     Dosage: 20 MG, DAILY
  4. MULTIVITAMIN [Concomitant]
     Dosage: UNK
  5. SINGULAIR [Concomitant]
     Dosage: 10 MG, DAILY
     Dates: start: 20080919
  6. ADVAIR [Concomitant]
     Dosage: UNK
     Dates: start: 20080919
  7. AVELOX [Concomitant]
     Dosage: 400 MG, DAILY
     Dates: start: 20080919
  8. XYZAL [Concomitant]
     Dosage: 5 MG, DAILY
     Dates: start: 20080919
  9. LEVAQUIN [Concomitant]
     Dosage: 500 MG, UNK
     Dates: start: 20080919

REACTIONS (18)
  - Pulmonary embolism [Recovered/Resolved]
  - Deep vein thrombosis [None]
  - Haematemesis [None]
  - Pulmonary infarction [None]
  - Vena cava injury [None]
  - Thrombophlebitis [None]
  - Anhedonia [None]
  - Injury [Recovered/Resolved]
  - Pain [None]
  - General physical health deterioration [Recovered/Resolved]
  - Anxiety [None]
  - Emotional distress [None]
  - Pain in extremity [None]
  - Chest discomfort [Recovered/Resolved]
  - Dyspnoea exertional [Recovered/Resolved]
  - Dyspnoea [Recovered/Resolved]
  - Local swelling [None]
  - Nausea [Recovered/Resolved]
